FAERS Safety Report 5269221-2 (Version None)
Quarter: 2007Q1

REPORT INFORMATION
  Report Type: 
  Country: None (occurrence: None)
  Receive Date: 20070319
  Receipt Date: 20070308
  Transmission Date: 20070707
  Serious: Yes (Other)
  Sender: FDA-Public Use
  Company Number: US-PFIZER INC-2007018667

PATIENT
  Sex: Female
  Weight: 72.6 kg

DRUGS (4)
  1. CHANTIX [Suspect]
     Indication: EX-SMOKER
     Dates: start: 20070125, end: 20070227
  2. SYNTHROID [Concomitant]
  3. ALL OTHER THERAPEUTIC PRODUCTS [Concomitant]
  4. NEXIUM [Concomitant]

REACTIONS (15)
  - ABNORMAL DREAMS [None]
  - AMNESIA [None]
  - BURNING SENSATION [None]
  - DIZZINESS [None]
  - FATIGUE [None]
  - HEADACHE [None]
  - HYPOAESTHESIA [None]
  - INSOMNIA [None]
  - IRRITABILITY [None]
  - MULTIPLE SCLEROSIS [None]
  - NAUSEA [None]
  - ORAL SURGERY [None]
  - PARAESTHESIA [None]
  - UNEVALUABLE EVENT [None]
  - VISUAL ACUITY REDUCED [None]
